FAERS Safety Report 17919199 (Version 2)
Quarter: 2020Q2

REPORT INFORMATION
  Report Type: Report from Study
  Country: IS (occurrence: IS)
  Receive Date: 20200619
  Receipt Date: 20200630
  Transmission Date: 20200714
  Serious: Yes (Other)
  Sender: FDA-Public Use
  Company Number: IS-BAXTER-2020BAX012823

PATIENT

DRUGS (9)
  1. DOXIL [Suspect]
     Active Substance: DOXORUBICIN HYDROCHLORIDE
     Indication: BREAST CANCER
  2. SENDOXAN, 200 MG STUNGULYFSSTOFN, LAUSN [Suspect]
     Active Substance: CYCLOPHOSPHAMIDE
     Indication: MALIGNANT URINARY TRACT NEOPLASM
     Route: 065
  3. SENDOXAN, 200 MG STUNGULYFSSTOFN, LAUSN [Suspect]
     Active Substance: CYCLOPHOSPHAMIDE
     Indication: BREAST CANCER
  4. DOCETAXEL. [Suspect]
     Active Substance: DOCETAXEL
     Indication: MALIGNANT URINARY TRACT NEOPLASM
     Route: 065
  5. SENDOXAN, 200 MG STUNGULYFSSTOFN, LAUSN [Suspect]
     Active Substance: CYCLOPHOSPHAMIDE
     Indication: MALIGNANT MELANOMA
  6. DOXIL [Suspect]
     Active Substance: DOXORUBICIN HYDROCHLORIDE
     Indication: MALIGNANT URINARY TRACT NEOPLASM
     Route: 065
  7. DOXIL [Suspect]
     Active Substance: DOXORUBICIN HYDROCHLORIDE
     Indication: MALIGNANT MELANOMA
  8. DOCETAXEL. [Suspect]
     Active Substance: DOCETAXEL
     Indication: MALIGNANT MELANOMA
  9. DOCETAXEL. [Suspect]
     Active Substance: DOCETAXEL
     Indication: BREAST CANCER

REACTIONS (1)
  - Drug-induced liver injury [Unknown]
